FAERS Safety Report 9830078 (Version 1)
Quarter: 2014Q1

REPORT INFORMATION
  Report Type: Report from Study
  Country: US (occurrence: US)
  Receive Date: 20140120
  Receipt Date: 20140120
  Transmission Date: 20141002
  Serious: Yes (Hospitalization)
  Sender: FDA-Public Use
  Company Number: US-ASTRAZENECA-2014SE03780

PATIENT
  Age: 21051 Day
  Sex: Male
  Weight: 103.9 kg

DRUGS (8)
  1. NEXIUM [Suspect]
     Route: 048
     Dates: start: 2008
  2. LISINOPRIL [Suspect]
     Indication: HYPERTENSION
     Route: 048
     Dates: start: 2010
  3. INSULIN [Concomitant]
     Indication: DIABETES MELLITUS
     Dosage: 70/30, 20 UNITS IN THE AM AND 10UNITS IN THE PM
     Route: 058
     Dates: start: 201309
  4. EFFIENT [Concomitant]
     Indication: ANTICOAGULANT THERAPY
     Route: 048
     Dates: start: 201309
  5. METFORMIN [Concomitant]
     Indication: DIABETES MELLITUS
     Route: 048
     Dates: start: 2008
  6. PRAVASTATIN [Concomitant]
     Indication: BLOOD CHOLESTEROL ABNORMAL
     Route: 048
     Dates: start: 201310
  7. CARVEDILOL [Concomitant]
     Indication: BLOOD PRESSURE ABNORMAL
     Route: 048
     Dates: start: 201309
  8. ASPIRIN [Concomitant]
     Route: 048
     Dates: start: 2008

REACTIONS (7)
  - Blood pressure increased [Unknown]
  - Arterial occlusive disease [Unknown]
  - Malaise [Unknown]
  - Chest pain [Unknown]
  - Diabetes mellitus [Unknown]
  - Drug dose omission [Unknown]
  - Drug ineffective [Unknown]
